FAERS Safety Report 8450855-9 (Version None)
Quarter: 2012Q2

REPORT INFORMATION
  Report Type: 
  Country: None (occurrence: None)
  Receive Date: 20120620
  Receipt Date: 20120613
  Transmission Date: 20120825
  Serious: Yes (Hospitalization, Other)
  Sender: FDA-Public Use
  Company Number: VE-PFIZER INC-2012137013

PATIENT
  Age: 80 Year
  Sex: Male

DRUGS (4)
  1. OMEPRAZOLE [Concomitant]
     Dosage: 40 MG, 1X/DAY
     Route: 048
  2. CARVEDILOL [Concomitant]
     Dosage: 6.25 MG, 1X/DAY
     Route: 048
  3. LIPITOR [Suspect]
     Indication: HYPERCHOLESTEROLAEMIA
     Dosage: 80 MG, 1X/DAY
     Route: 048
     Dates: start: 20080101
  4. ATACAND [Concomitant]
     Dosage: 8 MG, 1X/DAY
     Route: 048

REACTIONS (2)
  - CORONARY ARTERY DISEASE [None]
  - MYOCARDIAL INFARCTION [None]
